FAERS Safety Report 15663494 (Version 2)
Quarter: 2018Q4

REPORT INFORMATION
  Report Type: Spontaneous
  Country: NL (occurrence: NL)
  Receive Date: 20181128
  Receipt Date: 20181217
  Transmission Date: 20190205
  Serious: Yes (Other)
  Sender: FDA-Public Use
  Company Number: NL-B.I. PHARMACEUTICALS,INC./RIDGEFIELD-2018-12-003838

PATIENT
  Age: 49 Year
  Sex: Female

DRUGS (1)
  1. VARGATEF [Suspect]
     Active Substance: NINTEDANIB
     Indication: LUNG NEOPLASM MALIGNANT
     Dosage: 1D2
     Route: 065
     Dates: start: 201803, end: 20181015

REACTIONS (1)
  - Bone infarction [Recovered/Resolved with Sequelae]

NARRATIVE: CASE EVENT DATE: 201809
